FAERS Safety Report 5660947-5 (Version None)
Quarter: 2008Q1

REPORT INFORMATION
  Report Type: 
  Country: None (occurrence: None)
  Receive Date: 20080311
  Receipt Date: 20080229
  Transmission Date: 20080703
  Serious: Yes (Hospitalization, Other)
  Sender: FDA-Public Use
  Company Number: US-PFIZER INC-2005147732

PATIENT
  Sex: Male
  Weight: 65.8 kg

DRUGS (8)
  1. LIPITOR [Suspect]
     Indication: BLOOD CHOLESTEROL ABNORMAL
     Route: 048
     Dates: start: 20040217, end: 20050101
  2. COREG [Concomitant]
     Route: 048
  3. ECOTRIN [Concomitant]
     Route: 048
  4. XANAX [Concomitant]
  5. ISOSORBIDE MONONITRATE [Concomitant]
     Route: 048
  6. BUMEX [Concomitant]
  7. COUMADIN [Concomitant]
  8. ALTACE [Concomitant]

REACTIONS (46)
  - ACTIVATED PARTIAL THROMBOPLASTIN TIME PROLONGED [None]
  - ANGINA PECTORIS [None]
  - ANXIETY [None]
  - BLOOD CHLORIDE INCREASED [None]
  - BLOOD CHOLESTEROL INCREASED [None]
  - BLOOD GLUCOSE INCREASED [None]
  - BLOOD IRON DECREASED [None]
  - BLOOD POTASSIUM DECREASED [None]
  - BLOOD PRESSURE DECREASED [None]
  - BREATH ODOUR [None]
  - CARBON DIOXIDE INCREASED [None]
  - CARDIAC FAILURE CONGESTIVE [None]
  - CARDIAC OPERATION [None]
  - DEPRESSION [None]
  - DRUG INTOLERANCE [None]
  - DYSPNOEA [None]
  - ELECTROCARDIOGRAM T WAVE INVERSION [None]
  - FLATULENCE [None]
  - GALLBLADDER DISORDER [None]
  - GALLBLADDER NON-FUNCTIONING [None]
  - GASTRITIS [None]
  - GASTROOESOPHAGEAL REFLUX DISEASE [None]
  - HAEMATOCRIT DECREASED [None]
  - HAEMOGLOBIN DECREASED [None]
  - HEPATIC ENZYME INCREASED [None]
  - HEPATITIS [None]
  - HIATUS HERNIA [None]
  - HYPERTENSION [None]
  - INTERNATIONAL NORMALISED RATIO DECREASED [None]
  - INTRACARDIAC THROMBUS [None]
  - IRON BINDING CAPACITY TOTAL DECREASED [None]
  - LEFT ATRIAL DILATATION [None]
  - MELANOCYTIC NAEVUS [None]
  - MITRAL VALVE INCOMPETENCE [None]
  - MONOCYTE COUNT INCREASED [None]
  - MYOGLOBIN BLOOD INCREASED [None]
  - NAUSEA [None]
  - PROTEIN TOTAL DECREASED [None]
  - PROTHROMBIN TIME PROLONGED [None]
  - PULMONARY HYPERTENSION [None]
  - RED BLOOD CELL COUNT DECREASED [None]
  - SCAR [None]
  - SEBORRHOEIC KERATOSIS [None]
  - STRESS [None]
  - TROPONIN I INCREASED [None]
  - VERTIGO [None]
